FAERS Safety Report 7894431-5 (Version None)
Quarter: 2011Q4

REPORT INFORMATION
  Report Type: 
  Country: None (occurrence: None)
  Receive Date: 20111105
  Receipt Date: 20111026
  Transmission Date: 20120403
  Serious: Yes (Hospitalization)
  Sender: FDA-Public Use
  Company Number: IT-ASTRAZENECA-2011SE64511

PATIENT
  Age: 28753 Day
  Sex: Female

DRUGS (3)
  1. TENORMIN [Suspect]
     Indication: ATRIAL FIBRILLATION
     Route: 048
     Dates: start: 20061023, end: 20111023
  2. COUMADIN [Concomitant]
     Indication: ATRIAL FIBRILLATION
     Route: 048
     Dates: start: 20061023
  3. LOSAPREX [Concomitant]
     Route: 048
     Dates: start: 19960101

REACTIONS (3)
  - LOSS OF CONSCIOUSNESS [None]
  - BRADYCARDIA [None]
  - SYNCOPE [None]
